FAERS Safety Report 8394187-6 (Version None)
Quarter: 2012Q2

REPORT INFORMATION
  Report Type: 
  Country: None (occurrence: None)
  Receive Date: 20120530
  Receipt Date: 20120521
  Transmission Date: 20120825
  Serious: Yes (Hospitalization)
  Sender: FDA-Public Use
  Company Number: ES-B.I. PHARMACEUTICALS,INC./RIDGEFIELD-2012-ES-00192ES

PATIENT
  Age: 63 Year
  Sex: Female

DRUGS (4)
  1. ATENOLOL [Concomitant]
     Indication: ARRHYTHMIA
  2. IBUPROFEN [Suspect]
     Dates: start: 20120501, end: 20120501
  3. PRADAXA [Suspect]
     Indication: ATRIAL FIBRILLATION
     Route: 048
  4. OMEPRAZOLE [Concomitant]
     Indication: PROPHYLAXIS AGAINST GASTROINTESTINAL ULCER

REACTIONS (5)
  - VAGINAL HAEMORRHAGE [None]
  - HAEMORRHOIDS [None]
  - DIARRHOEA [None]
  - NAUSEA [None]
  - DRUG INTERACTION [None]
